FAERS Safety Report 18844888 (Version 2)
Quarter: 2021Q1

REPORT INFORMATION
  Report Type: Spontaneous
  Country: AU (occurrence: AU)
  Receive Date: 20210204
  Receipt Date: 20210328
  Transmission Date: 20210419
  Serious: Yes (Hospitalization, Disabling, Other)
  Sender: FDA-Public Use
  Company Number: AU-SA-2021SA032728

PATIENT
  Age: 39 Year
  Sex: Male
  Weight: 70 kg

DRUGS (1)
  1. DUPIXENT [Suspect]
     Active Substance: DUPILUMAB
     Indication: DERMATITIS ATOPIC
     Dosage: UNK
     Route: 065
     Dates: start: 201901, end: 202010

REACTIONS (4)
  - Chronic inflammatory demyelinating polyradiculoneuropathy [Not Recovered/Not Resolved]
  - Muscular weakness [Unknown]
  - Guillain-Barre syndrome [Not Recovered/Not Resolved]
  - Neurological decompensation [Unknown]

NARRATIVE: CASE EVENT DATE: 202010
